FAERS Safety Report 10027762 (Version 2)
Quarter: 2014Q1

REPORT INFORMATION
  Report Type: Spontaneous
  Country: JP (occurrence: JP)
  Receive Date: 20140321
  Receipt Date: 20140327
  Transmission Date: 20141002
  Serious: Yes (Other)
  Sender: FDA-Public Use
  Company Number: JP-BAYER-2014-040498

PATIENT
  Age: 23 Year
  Sex: Female

DRUGS (1)
  1. YAZ [Suspect]
     Indication: DYSMENORRHOEA
     Dosage: UNK
     Route: 048
     Dates: start: 201306

REACTIONS (9)
  - Abdominal distension [None]
  - Abdominal pain [None]
  - Loss of consciousness [None]
  - Asthenia [None]
  - Seasonal allergy [None]
  - Abdominal distension [None]
  - Abdominal distension [None]
  - Cold sweat [None]
  - Loss of consciousness [None]
